FAERS Safety Report 8062846-0 (Version None)
Quarter: 2012Q1

REPORT INFORMATION
  Report Type: 
  Country: None (occurrence: None)
  Receive Date: 20120123
  Receipt Date: 20120109
  Transmission Date: 20120608
  Serious: Yes (Death, Other)
  Sender: FDA-Public Use
  Company Number: KH-ROCHE-1029219

PATIENT
  Age: 9 Year
  Sex: Female
  Weight: 20 kg

DRUGS (1)
  1. ROCEPHIN [Suspect]
     Indication: PRODUCT USED FOR UNKNOWN INDICATION
     Dates: start: 20110329, end: 20110330

REACTIONS (4)
  - SEPSIS [None]
  - PYREXIA [None]
  - RESPIRATORY FAILURE [None]
  - CARDIAC FAILURE [None]
